FAERS Safety Report 22101621 (Version 1)
Quarter: 2023Q1

REPORT INFORMATION
  Report Type: Spontaneous
  Country: CN (occurrence: None)
  Receive Date: 20230316
  Receipt Date: 20230316
  Transmission Date: 20230417
  Serious: Yes (Other)
  Sender: FDA-Public Use
  Company Number: CN-ROCHE-3305051

PATIENT
  Age: 70 Year
  Sex: Male

DRUGS (5)
  1. TECENTRIQ [Suspect]
     Active Substance: ATEZOLIZUMAB
     Indication: Hepatic cancer
     Dosage: FOR 18 CYCLES
     Route: 065
     Dates: start: 20210304, end: 20220531
  2. TECENTRIQ [Suspect]
     Active Substance: ATEZOLIZUMAB
     Indication: Hepatocellular carcinoma
     Dosage: FOR THREE CYCLES
     Route: 065
     Dates: start: 202210
  3. AVASTIN [Suspect]
     Active Substance: BEVACIZUMAB
     Indication: Hepatic cancer
     Dosage: FOR 18 CYCLES
     Route: 065
     Dates: start: 20210304, end: 20220531
  4. AVASTIN [Suspect]
     Active Substance: BEVACIZUMAB
     Indication: Hepatocellular carcinoma
     Dosage: FOR THREE CYCLES
     Route: 065
     Dates: start: 202210
  5. ENTECAVIR [Concomitant]
     Active Substance: ENTECAVIR
     Indication: Chronic hepatitis B

REACTIONS (2)
  - Myocardial injury [Unknown]
  - Gastrointestinal haemorrhage [Unknown]
